FAERS Safety Report 9258877 (Version 1)
Quarter: 2013Q2

REPORT INFORMATION
  Report Type: Spontaneous
  Country: BR (occurrence: BR)
  Receive Date: 20130426
  Receipt Date: 20130426
  Transmission Date: 20140414
  Serious: Yes (Other)
  Sender: FDA-Public Use
  Company Number: BR-GLAXOSMITHKLINE-A1021460A

PATIENT
  Age: 1 Year
  Sex: Male
  Weight: 12 kg

DRUGS (2)
  1. AEROLIN [Suspect]
     Indication: ASTHMATIC CRISIS
     Dosage: 4PUFF SEE DOSAGE TEXT
     Route: 055
     Dates: start: 201110
  2. SERETIDE [Suspect]
     Indication: ASTHMA
     Dosage: 1PUFF TWICE PER DAY
     Route: 055
     Dates: start: 201110

REACTIONS (3)
  - Asthmatic crisis [Recovered/Resolved]
  - Cough [Not Recovered/Not Resolved]
  - Overdose [Not Recovered/Not Resolved]
